FAERS Safety Report 13844854 (Version 1)
Quarter: 2017Q3

REPORT INFORMATION
  Report Type: Spontaneous
  Country: IT (occurrence: IT)
  Receive Date: 20170808
  Receipt Date: 20170808
  Transmission Date: 20171127
  Serious: Yes (Other)
  Sender: FDA-Public Use
  Company Number: IT-SA-2017SA142978

PATIENT
  Age: 17 Year
  Sex: Female
  Weight: 46 kg

DRUGS (1)
  1. BISACODYL. [Suspect]
     Active Substance: BISACODYL
     Dosage: DOSE:30 UNIT(S)
     Route: 048
     Dates: start: 20170708, end: 20170709

REACTIONS (4)
  - Transaminases increased [Recovering/Resolving]
  - Abdominal pain [Recovering/Resolving]
  - Drug abuse [Unknown]
  - Intentional overdose [Unknown]

NARRATIVE: CASE EVENT DATE: 20170709
